FAERS Safety Report 7388426-8 (Version None)
Quarter: 2011Q2

REPORT INFORMATION
  Report Type: 
  Country: None (occurrence: None)
  Receive Date: 20110401
  Receipt Date: 20110318
  Transmission Date: 20111010
  Serious: Yes (Hospitalization)
  Sender: FDA-Public Use
  Company Number: CA-JNJFOC-20110309018

PATIENT
  Sex: Male
  Weight: 67.13 kg

DRUGS (4)
  1. REMICADE [Suspect]
     Indication: CROHN'S DISEASE
     Route: 042
  2. CHOLESTYRAMINE [Concomitant]
  3. VITAMIN B-12 [Concomitant]
  4. REMICADE [Suspect]
     Route: 042

REACTIONS (13)
  - CHILLS [None]
  - OXYGEN SATURATION DECREASED [None]
  - HOSPITALISATION [None]
  - FLUSHING [None]
  - TREMOR [None]
  - CHEST PAIN [None]
  - DYSPNOEA [None]
  - FATIGUE [None]
  - HEART RATE INCREASED [None]
  - TYPE IV HYPERSENSITIVITY REACTION [None]
  - CONFUSIONAL STATE [None]
  - INFUSION RELATED REACTION [None]
  - ERYTHEMA [None]
